FAERS Safety Report 8611202-2 (Version None)
Quarter: 2012Q3

REPORT INFORMATION
  Report Type: 
  Country: None (occurrence: None)
  Receive Date: 20120803
  Receipt Date: 20120723
  Transmission Date: 20120928
  Serious: Yes (Hospitalization)
  Sender: FDA-Public Use
  Company Number: ACO_31235_2012

PATIENT
  Age: 45 Year
  Sex: Female

DRUGS (6)
  1. CLONAZEPAM [Concomitant]
  2. REQUIP [Concomitant]
  3. AVONEX [Concomitant]
  4. FERROUS SULFATE TAB [Concomitant]
  5. PROZAC [Concomitant]
  6. AMPYRA [Suspect]
     Indication: PRODUCT USED FOR UNKNOWN INDICATION
     Dosage: 10 MG, BID, ORAL
     Route: 048
     Dates: start: 20120601, end: 20120701

REACTIONS (4)
  - DIZZINESS [None]
  - BLOOD POTASSIUM DECREASED [None]
  - URINARY TRACT INFECTION [None]
  - ASTHENIA [None]
